FAERS Safety Report 21351565 (Version 1)
Quarter: 2022Q3

REPORT INFORMATION
  Report Type: Report from Study
  Country: DE (occurrence: DE)
  Receive Date: 20220919
  Receipt Date: 20220919
  Transmission Date: 20221026
  Serious: Yes (Death, Hospitalization, Other)
  Sender: FDA-Public Use
  Company Number: DE-GILEAD-2020-0510998

PATIENT

DRUGS (3)
  1. BICTEGRAVIR\EMTRICITABINE\TENOFOVIR ALAFENAMIDE [Suspect]
     Active Substance: BICTEGRAVIR\EMTRICITABINE\TENOFOVIR ALAFENAMIDE
     Indication: HIV infection
     Dosage: UNK
     Route: 048
     Dates: start: 20201012
  2. HYDROKORTISON [Concomitant]
     Dosage: UNK
     Route: 042
     Dates: start: 20201222
  3. GANCICLOVIR [Concomitant]
     Active Substance: GANCICLOVIR
     Dosage: 5 MG, X2
     Route: 042
     Dates: start: 20201224

REACTIONS (3)
  - Hypovolaemic shock [Fatal]
  - Septic shock [Fatal]
  - Renal failure [Unknown]

NARRATIVE: CASE EVENT DATE: 20201221
